FAERS Safety Report 10422875 (Version 3)
Quarter: 2014Q3

REPORT INFORMATION
  Report Type: Spontaneous
  Country: FR (occurrence: FR)
  Receive Date: 20140902
  Receipt Date: 20140929
  Transmission Date: 20150326
  Serious: Yes (Other)
  Sender: FDA-Public Use
  Company Number: FR-BRISTOL-MYERS SQUIBB COMPANY-21344320

PATIENT
  Age: 69 Year
  Sex: Female
  Weight: 83 kg

DRUGS (1)
  1. YERVOY [Suspect]
     Active Substance: IPILIMUMAB
     Indication: MALIGNANT MELANOMA
     Dosage: 3 MG/KG-243 MG/COURSE.1ST DAY OF 1ST COURSE ON 09-JUL-14.?2ND DAY OF 2ND COURSE ON 30-JUL-2014.
     Route: 042
     Dates: start: 20140709, end: 20140730

REACTIONS (6)
  - Cholestasis [Recovering/Resolving]
  - Hepatitis [Recovering/Resolving]
  - Infection [Unknown]
  - Factor VII deficiency [Recovering/Resolving]
  - Cell death [Recovering/Resolving]
  - Cholecystitis [Recovering/Resolving]

NARRATIVE: CASE EVENT DATE: 201408
